FAERS Safety Report 12086900 (Version 1)
Quarter: 2016Q1

REPORT INFORMATION
  Report Type: Spontaneous
  Country: US (occurrence: US)
  Receive Date: 20160217
  Receipt Date: 20160217
  Transmission Date: 20160526
  Serious: No
  Sender: FDA-Public Use
  Company Number: US-ALLERGAN-1508467US

PATIENT
  Age: 43 Year
  Sex: Male
  Weight: 148.75 kg

DRUGS (1)
  1. RESTASIS [Suspect]
     Active Substance: CYCLOSPORINE
     Indication: DRY EYE
     Dosage: ONE DROP EACH EYE TWICE DAILY
     Route: 047
     Dates: start: 20150430, end: 20150501

REACTIONS (4)
  - Xanthopsia [Unknown]
  - Instillation site pain [Unknown]
  - Visual impairment [Unknown]
  - Vision blurred [Not Recovered/Not Resolved]

NARRATIVE: CASE EVENT DATE: 2015
